FAERS Safety Report 6174171-3 (Version None)
Quarter: 2009Q2

REPORT INFORMATION
  Report Type: 
  Country: None (occurrence: None)
  Receive Date: 20090430
  Receipt Date: 20080409
  Transmission Date: 20091009
  Serious: No
  Sender: FDA-Public Use
  Company Number: US-ASTRAZENECA-2008UW07230

PATIENT
  Age: 64 Year
  Sex: Female
  Weight: 68.9 kg

DRUGS (3)
  1. NEXIUM [Suspect]
     Indication: GASTROOESOPHAGEAL REFLUX DISEASE
     Route: 048
     Dates: start: 20080301
  2. NEXIUM [Suspect]
     Indication: GASTRIC ULCER
     Route: 048
     Dates: start: 20080301
  3. PHENERGAN [Concomitant]
     Indication: NAUSEA

REACTIONS (4)
  - NAUSEA [None]
  - NERVOUSNESS [None]
  - PRURITUS [None]
  - TENSION [None]
